FAERS Safety Report 15225654 (Version 1)
Quarter: 2018Q3

REPORT INFORMATION
  Report Type: Spontaneous
  Country: US (occurrence: US)
  Receive Date: 20180705
  Receipt Date: 20180705
  Transmission Date: 20181010
  Serious: Yes (Hospitalization)
  Sender: FDA-Public Use
  Company Number: None

PATIENT
  Age: 61 Year
  Sex: Male
  Weight: 97 kg

DRUGS (1)
  1. METRONIDAZOLE. [Suspect]
     Active Substance: METRONIDAZOLE
     Indication: GANGRENE
     Route: 048
     Dates: start: 20180308, end: 20180323

REACTIONS (2)
  - Hypertensive crisis [None]
  - Pancreatitis acute [None]

NARRATIVE: CASE EVENT DATE: 20180321
